FAERS Safety Report 7197101-4 (Version None)
Quarter: 2010Q4

REPORT INFORMATION
  Report Type: 
  Country: None (occurrence: None)
  Receive Date: 20101224
  Receipt Date: 20101210
  Transmission Date: 20110411
  Serious: Yes (Other)
  Sender: FDA-Public Use
  Company Number: PHHY2010DK86317

PATIENT
  Sex: Male
  Weight: 74 kg

DRUGS (2)
  1. ZOMETA [Suspect]
     Indication: OSTEOPOROSIS
     Dosage: 4 MG, PER 100MI NACL
     Dates: start: 20031016, end: 20040715
  2. DIDRONEL [Suspect]
     Dosage: UNK
     Route: 048
     Dates: start: 20010410, end: 20020610

REACTIONS (4)
  - DECREASED ACTIVITY [None]
  - HYPOPHAGIA [None]
  - OSTEONECROSIS OF JAW [None]
  - PAIN [None]
